FAERS Safety Report 6670968-1 (Version None)
Quarter: 2010Q2

REPORT INFORMATION
  Report Type: 
  Country: None (occurrence: None)
  Receive Date: 20100406
  Receipt Date: 20100406
  Transmission Date: 20101027
  Serious: Yes (Life-Threatening, Hospitalization)
  Sender: FDA-Public Use
  Company Number: None

PATIENT
  Age: 77 Year
  Sex: Male
  Weight: 64 kg

DRUGS (1)
  1. SULFAMETHOXAZOLE AND TRIMETHOPRIM [Suspect]
     Indication: PROSTATITIS
     Dosage: 800/160 MG BID PO
     Route: 048
     Dates: start: 20100301, end: 20100329

REACTIONS (7)
  - ABASIA [None]
  - ANXIETY [None]
  - CHILLS [None]
  - HYPERKALAEMIA [None]
  - MUSCULAR WEAKNESS [None]
  - NAUSEA [None]
  - PAIN IN EXTREMITY [None]
